FAERS Safety Report 4366220-X (Version None)
Quarter: 2004Q2

REPORT INFORMATION
  Report Type: 
  Country: None (occurrence: None)
  Receive Date: 20040527
  Receipt Date: 20040329
  Transmission Date: 20050107
  Serious: No
  Sender: FDA-Public Use
  Company Number: US-BRISTOL-MYERS SQUIBB COMPANY-12545612

PATIENT
  Age: 74 Year
  Sex: Male

DRUGS (12)
  1. DEFINITY [Suspect]
     Indication: ULTRASOUND SCAN
     Dosage: ROUTE: DILUTED BOLUS INJECTION DOSAGE: 2CC, FOLLOWED BY 1 CC (GIVEN .5 AND .5)
     Route: 051
     Dates: start: 20040325, end: 20040325
  2. LASIX [Concomitant]
  3. DIGOXIN [Concomitant]
  4. PROBENECID [Concomitant]
  5. SPIRONOLACTONE [Concomitant]
  6. HYDROCHLOROTHIAZIDE [Concomitant]
  7. PRILOSEC [Concomitant]
  8. ASPIRIN [Concomitant]
  9. TOPROL-XL [Concomitant]
  10. VITAMIN E [Concomitant]
  11. VITAMIN C [Concomitant]
  12. MULTI-VITAMIN [Concomitant]

REACTIONS (2)
  - JOINT SWELLING [None]
  - RASH [None]
